FAERS Safety Report 24299550 (Version 1)
Quarter: 2024Q3

REPORT INFORMATION
  Report Type: Spontaneous
  Country: PL (occurrence: PL)
  Receive Date: 20240909
  Receipt Date: 20240909
  Transmission Date: 20241017
  Serious: Yes (Death, Hospitalization, Other)
  Sender: RANBAXY
  Company Number: PL-SUN PHARMACEUTICAL INDUSTRIES LTD-2024R1-466559

PATIENT
  Sex: Female
  Weight: 1.85 kg

DRUGS (3)
  1. AMOXICILLIN [Suspect]
     Active Substance: AMOXICILLIN
     Indication: Preterm premature rupture of membranes
     Dosage: UNK
     Route: 064
  2. AZITHROMYCIN [Suspect]
     Active Substance: AZITHROMYCIN
     Indication: Preterm premature rupture of membranes
     Dosage: UNK
     Route: 064
  3. CEFTRIAXONE [Suspect]
     Active Substance: CEFTRIAXONE\CEFTRIAXONE SODIUM
     Indication: Preterm premature rupture of membranes
     Dosage: UNK
     Route: 064

REACTIONS (4)
  - Caudal regression syndrome [Fatal]
  - Premature baby [Unknown]
  - Low birth weight baby [Unknown]
  - Foetal exposure during pregnancy [Unknown]
